FAERS Safety Report 8609363 (Version 3)
Quarter: 2012Q4

REPORT INFORMATION
  Report Type: 
  Country: US (occurrence: US)
  Receive Date: 20120612
  Receipt Date: 20121214
  Transmission Date: 20130627
  Serious: Yes (Hospitalization)
  Sender: FDA-Public Use
  Company Number: US-BIOGENIDEC-2012BI020327

PATIENT
  Age: 63 Year
  Sex: Female

DRUGS (24)
  1. TYSABRI [Suspect]
     Indication: MULTIPLE SCLEROSIS RELAPSE
     Route: 042
     Dates: start: 20070219, end: 20100315
  2. TYSABRI [Suspect]
     Indication: MULTIPLE SCLEROSIS RELAPSE
     Route: 042
     Dates: start: 20110718
  3. VITAMIN B COMPLEX [Concomitant]
     Route: 048
  4. FISH OIL [Concomitant]
     Route: 048
  5. GLUCOSAMINE AND CHONDROITIN WITH MSM [Concomitant]
     Route: 048
  6. MIRALAX [Concomitant]
     Route: 048
  7. SANCTURA XR [Concomitant]
     Route: 048
  8. VICODIN ES [Concomitant]
     Route: 048
  9. VITAMIN C [Concomitant]
     Route: 048
  10. VITAMIN D3 [Concomitant]
     Route: 048
  11. ASPIRIN [Concomitant]
     Route: 048
  12. BACLOFEN [Concomitant]
     Route: 048
  13. BACLOFEN [Concomitant]
     Route: 048
  14. CALCIUM CARBONATE [Concomitant]
     Route: 048
  15. CITALOPRAM [Concomitant]
     Route: 048
  16. FUROSEMIDE [Concomitant]
     Route: 048
  17. GOTU KOLA [Concomitant]
     Route: 048
  18. LEVOTHYROXINE [Concomitant]
     Route: 048
  19. MAGNESIUM OXIDE [Concomitant]
     Route: 048
  20. MELOXICAM [Concomitant]
     Route: 048
  21. SIMVASTATIN [Concomitant]
     Route: 048
  22. TIZANIDINE [Concomitant]
     Route: 048
  23. VITAMIN A [Concomitant]
     Route: 048
  24. VITAMIN E [Concomitant]
     Route: 048

REACTIONS (6)
  - Multiple sclerosis relapse [Recovered/Resolved]
  - Device related infection [Recovered/Resolved]
  - Hypokalaemia [Unknown]
  - Oropharyngeal pain [Unknown]
  - Urinary tract infection enterococcal [Not Recovered/Not Resolved]
  - Venous injury [Not Recovered/Not Resolved]
